FAERS Safety Report 5639340-7 (Version None)
Quarter: 2008Q1

REPORT INFORMATION
  Report Type: 
  Country: None (occurrence: None)
  Receive Date: 20080131
  Receipt Date: 20071220
  Transmission Date: 20080703
  Serious: Yes (Hospitalization)
  Sender: FDA-Public Use
  Company Number: 163-21880-07121190

PATIENT
  Age: 56 Year
  Sex: Female

DRUGS (6)
  1. REVLIMID [Suspect]
     Indication: MULTIPLE MYELOMA
     Dosage: 15-25 MG, DAILY, ORAL
     Route: 048
     Dates: start: 20070404, end: 20071212
  2. LORAZEPAM [Concomitant]
  3. LEXAPRO [Concomitant]
  4. CITRIMAX (GARCINIA CAMBOGIA) [Concomitant]
  5. FLEXERIL [Concomitant]
  6. DEXAMETHASONE TAB [Concomitant]

REACTIONS (2)
  - NEUTROPENIA [None]
  - PNEUMONIA [None]
